FAERS Safety Report 18127152 (Version 1)
Quarter: 2020Q3

REPORT INFORMATION
  Report Type: Spontaneous
  Country: FR (occurrence: FR)
  Receive Date: 20200810
  Receipt Date: 20200810
  Transmission Date: 20201103
  Serious: Yes (Other)
  Sender: FDA-Public Use
  Company Number: FR-LUPIN PHARMACEUTICALS INC.-2020-04300

PATIENT
  Age: 65 Year
  Sex: Male

DRUGS (4)
  1. SERTRALINE [Suspect]
     Active Substance: SERTRALINE HYDROCHLORIDE
     Dosage: 100 MILLIGRAM, QD
     Route: 065
  2. OLANZAPINE. [Suspect]
     Active Substance: OLANZAPINE
     Indication: OBSESSIVE-COMPULSIVE SYMPTOM
     Dosage: 10 MILLIGRAM, QD
     Route: 065
  3. SERTRALINE [Suspect]
     Active Substance: SERTRALINE HYDROCHLORIDE
     Indication: OBSESSIVE-COMPULSIVE SYMPTOM
     Dosage: 200 MILLIGRAM, QD
     Route: 065
  4. OLANZAPINE. [Suspect]
     Active Substance: OLANZAPINE
     Dosage: 7.5 MILLIGRAM, QD
     Route: 065

REACTIONS (11)
  - Hallucination, visual [Recovering/Resolving]
  - Extrapyramidal disorder [Recovering/Resolving]
  - Dementia with Lewy bodies [Recovering/Resolving]
  - Dyskinesia [Recovering/Resolving]
  - Gait disturbance [Recovering/Resolving]
  - Fall [Recovering/Resolving]
  - Suicidal ideation [Recovering/Resolving]
  - Reduced facial expression [Recovering/Resolving]
  - Irritability [Recovering/Resolving]
  - Obsessive-compulsive disorder [Recovering/Resolving]
  - Treatment failure [Unknown]
